FAERS Safety Report 5671137-4 (Version None)
Quarter: 2008Q1

REPORT INFORMATION
  Report Type: 
  Country: None (occurrence: None)
  Receive Date: 20080318
  Receipt Date: 20080227
  Transmission Date: 20080703
  Serious: No
  Sender: FDA-Public Use
  Company Number: US-JNJFOC-20080207073

PATIENT
  Sex: Male
  Weight: 108.86 kg

DRUGS (5)
  1. INVEGA [Suspect]
     Indication: SCHIZOPHRENIA
     Route: 048
  2. ZOLOFT [Concomitant]
     Indication: BIPOLAR DISORDER
  3. LITHOBID [Concomitant]
     Indication: BIPOLAR DISORDER
  4. CLOZAPINE [Concomitant]
     Indication: PSYCHOTIC DISORDER
  5. ACTOS [Concomitant]
     Indication: DIABETES MELLITUS

REACTIONS (3)
  - ASTHENOPIA [None]
  - DRUG INEFFECTIVE [None]
  - STOMACH DISCOMFORT [None]
